FAERS Safety Report 14518516 (Version 2)
Quarter: 2020Q3

REPORT INFORMATION
  Report Type: Spontaneous
  Country: US (occurrence: US)
  Receive Date: 20180212
  Receipt Date: 20200826
  Transmission Date: 20201102
  Serious: No
  Sender: FDA-Public Use
  Company Number: US-JNJFOC-20180132320

PATIENT
  Age: 58 Year
  Sex: Female
  Weight: 49.43 kg

DRUGS (13)
  1. ADCIRCA [Concomitant]
     Active Substance: TADALAFIL
     Indication: PRODUCT USED FOR UNKNOWN INDICATION
     Route: 065
  2. ZYRTEC [Suspect]
     Active Substance: CETIRIZINE HYDROCHLORIDE
     Indication: INFUSION SITE PAIN
     Route: 065
  3. ADEMPAS [Concomitant]
     Active Substance: RIOCIGUAT
     Route: 065
  4. OPSUMIT [Concomitant]
     Active Substance: MACITENTAN
     Route: 048
  5. OPSUMIT [Concomitant]
     Active Substance: MACITENTAN
     Route: 048
  6. TRAMADOL. [Concomitant]
     Active Substance: TRAMADOL
     Indication: INFUSION SITE PAIN
     Route: 065
  7. REMODULIN [Concomitant]
     Active Substance: TREPROSTINIL
     Indication: PULMONARY ARTERIAL HYPERTENSION
     Dosage: 81 NG/KG/MIN
     Route: 065
  8. ADEMPAS [Concomitant]
     Active Substance: RIOCIGUAT
     Indication: PRODUCT USED FOR UNKNOWN INDICATION
     Dosage: 81 NG/KG/MIN
     Route: 065
     Dates: start: 20171006
  9. OPSUMIT [Concomitant]
     Active Substance: MACITENTAN
     Indication: PULMONARY ARTERIAL HYPERTENSION
     Dosage: 81 NG/KG/MIN
     Route: 048
     Dates: start: 20150914
  10. OPSUMIT [Concomitant]
     Active Substance: MACITENTAN
     Route: 048
  11. OPSUMIT [Concomitant]
     Active Substance: MACITENTAN
     Route: 048
  12. OPSUMIT [Concomitant]
     Active Substance: MACITENTAN
     Route: 048
  13. XARELTO [Concomitant]
     Active Substance: RIVAROXABAN
     Indication: PRODUCT USED FOR UNKNOWN INDICATION
     Dosage: 81 NG/KG/MIN
     Route: 065

REACTIONS (5)
  - Nausea [Unknown]
  - Dizziness [Unknown]
  - Palpitations [Unknown]
  - Off label use [Unknown]
  - Product use in unapproved indication [Unknown]
